FAERS Safety Report 19078362 (Version 1)
Quarter: 2021Q1

REPORT INFORMATION
  Report Type: Report from Study
  Country: IT (occurrence: IT)
  Receive Date: 20210331
  Receipt Date: 20210331
  Transmission Date: 20210420
  Serious: Yes (Hospitalization)
  Sender: FDA-Public Use
  Company Number: IT-PFIZER INC-2021302523

PATIENT
  Age: 82 Year
  Sex: Female

DRUGS (14)
  1. ROSUVASTATIN CALCIUM. [Concomitant]
     Active Substance: ROSUVASTATIN CALCIUM
     Dosage: 5 MG
     Route: 048
  2. ACIDO ACETILSALICILICO EG [Concomitant]
     Dosage: 100 MG
     Route: 048
  3. CARDURA [Suspect]
     Active Substance: DOXAZOSIN MESYLATE
     Indication: HYPERTENSION
     Dosage: 8 MG, 1X/DAY
     Route: 048
     Dates: start: 20210125, end: 20210129
  4. DAPAROX [PAROXETINE MESILATE] [Concomitant]
     Active Substance: PAROXETINE MESYLATE
     Dosage: 20 MG
     Route: 048
  5. RETACRIT [EPOETIN ZETA] [Concomitant]
     Active Substance: ERYTHROPOIETIN
     Dosage: 10 KIU
  6. OTEZLA [Concomitant]
     Active Substance: APREMILAST
     Dosage: 30 MG
     Route: 048
  7. GABAPENTIN. [Concomitant]
     Active Substance: GABAPENTIN
     Dosage: 300 MG, 1X/DAY
     Route: 048
  8. BISOPROLOL FUMARATE. [Interacting]
     Active Substance: BISOPROLOL FUMARATE
     Indication: HYPERTENSION
     Dosage: 1.25 MG, 1X/DAY
     Route: 048
     Dates: start: 20190201
  9. ZYLORIC [Concomitant]
     Active Substance: ALLOPURINOL
     Dosage: 300 MG
     Route: 048
  10. NOLPAZA [Concomitant]
     Active Substance: PANTOPRAZOLE SODIUM
     Dosage: 20 MG, 1X/DAY
     Route: 048
  11. DIURESIX [TORASEMIDE] [Concomitant]
     Dosage: 10 MG
     Route: 048
  12. OTEZLA [Concomitant]
     Active Substance: APREMILAST
     Dosage: 2 DF, 1X/DAY
     Route: 048
  13. DIBASE [Concomitant]
     Active Substance: CHOLECALCIFEROL
     Dosage: 25 KIU
     Route: 048
  14. ENTOCIR [Concomitant]
     Active Substance: BUDESONIDE
     Dosage: 3 MG
     Route: 048

REACTIONS (2)
  - Drug interaction [Recovering/Resolving]
  - Orthostatic hypotension [Recovering/Resolving]

NARRATIVE: CASE EVENT DATE: 20210129
